FAERS Safety Report 12870522 (Version 5)
Quarter: 2017Q3

REPORT INFORMATION
  Report Type: Report from Study
  Country: US (occurrence: US)
  Receive Date: 20161020
  Receipt Date: 20170728
  Transmission Date: 20171127
  Serious: No
  Sender: FDA-Public Use
  Company Number: US-AMGEN-USASL2016123570

PATIENT
  Age: 73 Year
  Sex: Female
  Weight: 62.18 kg

DRUGS (1)
  1. REPATHA [Suspect]
     Active Substance: EVOLOCUMAB
     Indication: BLOOD CHOLESTEROL ABNORMAL
     Dosage: 140 MG, Q2WK
     Route: 030
     Dates: start: 201601, end: 20160820

REACTIONS (9)
  - Myalgia [Not Recovered/Not Resolved]
  - Incorrect route of drug administration [Unknown]
  - Tenderness [Unknown]
  - Myositis [Unknown]
  - Muscle atrophy [Unknown]
  - Muscle swelling [Unknown]
  - Muscle disorder [Unknown]
  - Adverse event [Unknown]
  - Muscular weakness [Unknown]

NARRATIVE: CASE EVENT DATE: 201601
